FAERS Safety Report 7554377-9 (Version None)
Quarter: 2011Q2

REPORT INFORMATION
  Report Type: 
  Country: None (occurrence: None)
  Receive Date: 20110617
  Receipt Date: 20110607
  Transmission Date: 20111010
  Serious: Yes (Other)
  Sender: FDA-Public Use
  Company Number: US-ROCHE-734308

PATIENT
  Sex: Female
  Weight: 74.8 kg

DRUGS (8)
  1. DOXYCYCLINE [Concomitant]
     Dates: start: 20020101
  2. ACCUTANE [Suspect]
     Route: 065
     Dates: start: 20040929
  3. ACCUTANE [Suspect]
     Route: 065
     Dates: start: 20050101, end: 20061231
  4. ACCUTANE [Suspect]
     Route: 065
     Dates: start: 20071101, end: 20071211
  5. INSULIN [Concomitant]
  6. ACCUTANE [Suspect]
     Indication: ACNE
     Route: 065
     Dates: start: 20030101, end: 20030101
  7. LISINOPRIL [Concomitant]
  8. VYTORIN [Concomitant]

REACTIONS (21)
  - GASTROINTESTINAL INJURY [None]
  - IRRITABLE BOWEL SYNDROME [None]
  - BLOOD ALKALINE PHOSPHATASE INCREASED [None]
  - DIABETES MELLITUS INADEQUATE CONTROL [None]
  - OESOPHAGEAL ULCER [None]
  - OESOPHAGITIS [None]
  - HYPERTENSION [None]
  - DRUG EXPOSURE DURING PREGNANCY [None]
  - DEPRESSION [None]
  - PREGNANCY [None]
  - DIABETIC KETOACIDOSIS [None]
  - GLAUCOMA [None]
  - HYPOKALAEMIA [None]
  - NORMOCHROMIC NORMOCYTIC ANAEMIA [None]
  - URINARY TRACT INFECTION [None]
  - COLITIS ULCERATIVE [None]
  - INTRA-UTERINE DEATH [None]
  - SINUS BRADYCARDIA [None]
  - SUICIDAL IDEATION [None]
  - BLOOD CHOLESTEROL INCREASED [None]
  - NEPHRITIC SYNDROME [None]
